FAERS Safety Report 8809469 (Version 1)
Quarter: 2012Q4

REPORT INFORMATION
  Report Type: 
  Country: BR (occurrence: BR)
  Receive Date: 20120926
  Receipt Date: 20120926
  Transmission Date: 20130627
  Serious: Yes (Hospitalization, Other)
  Sender: FDA-Public Use
  Company Number: PHHY2012BR083610

PATIENT
  Sex: Female
  Weight: 60 kg

DRUGS (4)
  1. DIOVAN HCT [Suspect]
     Indication: HYPERTENSION
     Dosage: 1 DF (80/? mg), BID (in the morning and at night)
     Route: 048
  2. DIOVAN [Suspect]
     Indication: HYPERTENSION
     Dosage: 160 mg, BID
     Route: 048
  3. CRESTOR [Concomitant]
     Indication: CARDIOVASCULAR EVENT PROPHYLAXIS
     Dosage: 1 DF (5 mg), QD (at night)
     Route: 048
  4. CRESTOR [Concomitant]
     Dosage: 10 mg, UNK

REACTIONS (7)
  - Post procedural haematoma [Recovered/Resolved]
  - Pneumonia [Recovered/Resolved]
  - Pulmonary embolism [Recovered/Resolved]
  - Nerve compression [None]
  - Pain [Recovering/Resolving]
  - Palpitations [Recovered/Resolved]
  - Tachycardia [Recovered/Resolved]
